FAERS Safety Report 6348823-6 (Version None)
Quarter: 2009Q3

REPORT INFORMATION
  Report Type: 
  Country: None (occurrence: None)
  Receive Date: 20090911
  Receipt Date: 20090901
  Transmission Date: 20100115
  Serious: Yes (Hospitalization)
  Sender: FDA-Public Use
  Company Number: US-ALEXION-A200900694

PATIENT
  Sex: Male

DRUGS (5)
  1. SOLIRIS [Suspect]
     Indication: PAROXYSMAL NOCTURNAL HAEMOGLOBINURIA
     Dosage: 600 MG WEEKLY FOR 4 WEEKS
     Route: 042
     Dates: start: 20070702, end: 20070723
  2. SOLIRIS [Suspect]
     Dosage: 900 MG Q2W
     Route: 042
     Dates: start: 20070730, end: 20080304
  3. SOLIRIS [Suspect]
     Dosage: 1200 MG, Q14D
     Dates: start: 20080318
  4. SOLIRIS [Suspect]
     Dosage: UNK
  5. VITAMIN B12                        /00056201/ [Concomitant]
     Indication: VITAMIN B12 DEFICIENCY

REACTIONS (1)
  - PNEUMONIA [None]
